FAERS Safety Report 11610260 (Version 1)
Quarter: 2015Q4

REPORT INFORMATION
  Report Type: Report from Study
  Country: CA (occurrence: CA)
  Receive Date: 20151008
  Receipt Date: 20151008
  Transmission Date: 20160304
  Serious: Yes (Hospitalization, Other)
  Sender: FDA-Public Use
  Company Number: CA-ROCHE-1330984

PATIENT
  Age: 49 Year
  Sex: Male
  Weight: 106.8 kg

DRUGS (9)
  1. RITUXAN [Suspect]
     Active Substance: RITUXIMAB
     Indication: RHEUMATOID ARTHRITIS
     Dosage: LAST DOSE OF RITUXIMAB RECEIVED ON 13/AUG/2014?LAST DOSE OF RITUXIMAB RECEIVED ON 16/MAR/2015
     Route: 042
     Dates: start: 20140106
  2. ACETAMINOPHEN. [Concomitant]
     Active Substance: ACETAMINOPHEN
     Route: 048
     Dates: start: 20140106
  3. METHOTREXATE [Concomitant]
     Active Substance: METHOTREXATE
  4. MIRTAZAPINE. [Concomitant]
     Active Substance: MIRTAZAPINE
  5. METHYLPREDNISOLONE. [Concomitant]
     Active Substance: METHYLPREDNISOLONE
     Route: 042
     Dates: start: 20140106
  6. CITALOPRAM [Concomitant]
     Active Substance: CITALOPRAM HYDROBROMIDE
  7. CELEBREX [Concomitant]
     Active Substance: CELECOXIB
  8. DIPHENHYDRAMINE HCL [Concomitant]
     Active Substance: DIPHENHYDRAMINE HYDROCHLORIDE
     Route: 048
     Dates: start: 20140106
  9. OLMESARTAN [Concomitant]
     Active Substance: OLMESARTAN

REACTIONS (15)
  - Nerve injury [Not Recovered/Not Resolved]
  - Weight decreased [Unknown]
  - Pain [Not Recovered/Not Resolved]
  - Meningitis bacterial [Unknown]
  - Joint swelling [Unknown]
  - Post procedural infection [Unknown]
  - Neuralgia [Unknown]
  - Sciatica [Unknown]
  - Infusion related reaction [Recovered/Resolved]
  - Myalgia [Unknown]
  - Intervertebral disc protrusion [Unknown]
  - Spinal column injury [Unknown]
  - Fibromyalgia [Unknown]
  - Arthritis [Unknown]
  - Inflammation [Unknown]

NARRATIVE: CASE EVENT DATE: 20140106
